FAERS Safety Report 6487149-7 (Version None)
Quarter: 2009Q4

REPORT INFORMATION
  Report Type: 
  Country: None (occurrence: None)
  Receive Date: 20091210
  Receipt Date: 20090811
  Transmission Date: 20100525
  Serious: No
  Sender: FDA-Public Use
  Company Number: US-AMGEN-KDL359426

PATIENT
  Sex: Female
  Weight: 57.2 kg

DRUGS (3)
  1. ENBREL [Suspect]
     Indication: ANKYLOSING SPONDYLITIS
     Route: 058
     Dates: start: 20070101
  2. CYCLOBENZAPRINE [Concomitant]
     Dates: start: 20030204
  3. DICLOFENAC [Concomitant]
     Dates: start: 20050302

REACTIONS (2)
  - EYE PAIN [None]
  - PHOTOPHOBIA [None]
